FAERS Safety Report 5233813-7 (Version None)
Quarter: 2007Q1

REPORT INFORMATION
  Report Type: 
  Country: None (occurrence: None)
  Receive Date: 20061208
  Receipt Date: 20060220
  Transmission Date: 20070707
  Serious: Yes (Other)
  Sender: FDA-Public Use
  Company Number: 2006UW02820

PATIENT
  Age: 51 Year
  Sex: Female
  Weight: 73.481 kg

DRUGS (4)
  1. CRESTOR [Suspect]
  2. DIOVANE [Concomitant]
  3. ZELNORM /CAN/ [Concomitant]
  4. .. [Concomitant]

REACTIONS (1)
  - BILE DUCT OBSTRUCTION [None]
